FAERS Safety Report 24435353 (Version 2)
Quarter: 2025Q1

REPORT INFORMATION
  Report Type: Spontaneous
  Country: AU (occurrence: AU)
  Receive Date: 20241015
  Receipt Date: 20250122
  Transmission Date: 20250409
  Serious: Yes (Death, Other)
  Sender: ABBVIE
  Company Number: AU-JNJFOC-20241026456

PATIENT

DRUGS (2)
  1. IMBRUVICA [Suspect]
     Active Substance: IBRUTINIB
     Indication: Chronic lymphocytic leukaemia
     Route: 048
  2. ZANUBRUTINIB [Suspect]
     Active Substance: ZANUBRUTINIB
     Indication: Chronic lymphocytic leukaemia
     Route: 050

REACTIONS (9)
  - Atrial fibrillation [Fatal]
  - Neutropenia [Fatal]
  - Hypertension [Fatal]
  - Upper respiratory tract infection [Unknown]
  - Atrial flutter [Unknown]
  - Cardiac disorder [Unknown]
  - Diarrhoea [Unknown]
  - Pneumonia [Fatal]
  - COVID-19 [Fatal]
